FAERS Safety Report 4731742-6 (Version None)
Quarter: 2005Q3

REPORT INFORMATION
  Report Type: 
  Country: None (occurrence: None)
  Receive Date: 20050725
  Receipt Date: 20041018
  Transmission Date: 20060218
  Serious: Yes (Disabling)
  Sender: FDA-Public Use
  Company Number: WAES 0306USA00630

PATIENT
  Age: 52 Year
  Sex: Male
  Weight: 102.0593 kg

DRUGS (5)
  1. VIOXX [Suspect]
     Indication: BACK PAIN
     Dosage: 12.5 MG/DAILY/PO
     Route: 048
     Dates: start: 20000425, end: 20010309
  2. VIOXX [Suspect]
     Indication: SACROILIITIS
     Dosage: 12.5 MG/DAILY/PO
     Route: 048
     Dates: start: 20000425, end: 20010309
  3. DAYPRO [Concomitant]
  4. PAXIL [Concomitant]
  5. ULTRAM [Concomitant]

REACTIONS (3)
  - ADVERSE EVENT [None]
  - BACK PAIN [None]
  - DEPRESSION [None]
